FAERS Safety Report 7356842 (Version 2)
Quarter: 2012Q4

REPORT INFORMATION
  Report Type: 
  Country: IT (occurrence: IT)
  Receive Date: 20100416
  Receipt Date: 20121203
  Transmission Date: 20130627
  Serious: Yes (Other)
  Sender: FDA-Public Use
  Company Number: IT-JNJFOC-20100403073

PATIENT

DRUGS (3)
  1. ETRAVIRINE [Suspect]
     Indication: HIV INFECTION
     Route: 048
  2. RALTEGRAVIR [Suspect]
     Indication: HIV INFECTION
     Route: 065
  3. MARAVIROC [Suspect]
     Indication: HIV INFECTION
     Route: 065

REACTIONS (1)
  - Hodgkin^s disease [Unknown]
